FAERS Safety Report 7581553-1 (Version None)
Quarter: 2011Q2

REPORT INFORMATION
  Report Type: 
  Country: None (occurrence: None)
  Receive Date: 20110629
  Receipt Date: 20110622
  Transmission Date: 20111010
  Serious: Yes (Hospitalization)
  Sender: FDA-Public Use
  Company Number: PHHO2011AT10171

PATIENT
  Sex: Female
  Weight: 91 kg

DRUGS (3)
  1. PROGRAF [Suspect]
     Indication: RENAL TRANSPLANT
     Dosage: 7 MG, BID
     Route: 048
     Dates: start: 20101128
  2. APREDNISLON [Concomitant]
     Indication: RENAL TRANSPLANT
     Dosage: 5 MG, UNK
     Dates: start: 20101128
  3. MYFORTIC [Suspect]
     Indication: RENAL TRANSPLANT
     Dosage: 720 MG, BID
     Route: 048
     Dates: start: 20101128

REACTIONS (2)
  - RESPIRATORY DISORDER [None]
  - URINARY TRACT INFECTION [None]
